FAERS Safety Report 21739366 (Version 1)
Quarter: 2022Q4

REPORT INFORMATION
  Report Type: Spontaneous
  Country: US (occurrence: None)
  Receive Date: 20221215
  Receipt Date: 20221215
  Transmission Date: 20230113
  Serious: No
  Sender: FDA-Public Use
  Company Number: None

PATIENT
  Sex: Female

DRUGS (2)
  1. DEVICE [Suspect]
     Active Substance: DEVICE
     Indication: Pulmonary arterial hypertension
     Dosage: OTHER QUANTITY : 20NG/KG/MIN ;?OTHER FREQUENCY : CONTINUOUS;?
     Route: 042
     Dates: start: 202208
  2. REMODULIN [Suspect]
     Active Substance: TREPROSTINIL
     Route: 042

REACTIONS (5)
  - Nausea [None]
  - Flushing [None]
  - Dyspnoea [None]
  - Recalled product [None]
  - Recalled product administered [None]
